FAERS Safety Report 6701914-X (Version None)
Quarter: 2010Q2

REPORT INFORMATION
  Report Type: 
  Country: None (occurrence: None)
  Receive Date: 20100429
  Receipt Date: 20100419
  Transmission Date: 20101027
  Serious: Yes (Other)
  Sender: FDA-Public Use
  Company Number: GB-PFIZER INC-2010049335

PATIENT
  Age: 59 Year
  Sex: Male

DRUGS (1)
  1. CHAMPIX [Suspect]
     Dosage: 1 MG, 1X/DAY
     Dates: start: 20100322, end: 20100412

REACTIONS (3)
  - EYE PAIN [None]
  - INTRAOCULAR PRESSURE INCREASED [None]
  - VISION BLURRED [None]
